FAERS Safety Report 5369243-7 (Version None)
Quarter: 2007Q2

REPORT INFORMATION
  Report Type: 
  Country: None (occurrence: None)
  Receive Date: 20070625
  Receipt Date: 20070326
  Transmission Date: 20071010
  Serious: Yes (Hospitalization)
  Sender: FDA-Public Use
  Company Number: US-ASTRAZENECA-2007UW04158

PATIENT
  Age: 11582 Day
  Sex: Female
  Weight: 86.4 kg

DRUGS (12)
  1. CRESTOR [Suspect]
     Indication: DYSLIPIDAEMIA
     Route: 048
     Dates: start: 20061015, end: 20070216
  2. NORDETTE-21 [Suspect]
  3. LEXAPRO [Concomitant]
     Indication: DEPRESSION
     Route: 048
     Dates: start: 20020101
  4. AVANDAMET [Concomitant]
     Indication: DIABETES MELLITUS
     Dosage: 4/500
     Route: 048
     Dates: start: 20020101
  5. TOPROL-XL [Concomitant]
     Indication: HYPERTENSION
     Route: 048
     Dates: start: 20040101
  6. TOPROL-XL [Concomitant]
     Indication: TACHYCARDIA
     Route: 048
     Dates: start: 20040101
  7. DIOVAN [Concomitant]
     Dosage: 100/12.5
  8. LEVORA 0.15/30-28 [Concomitant]
     Indication: ORAL CONTRACEPTION
  9. DIOVAN HCT [Concomitant]
     Indication: HYPERTENSION
     Dosage: 160/12.5
     Dates: start: 20040401, end: 20070216
  10. NAPROXEN [Concomitant]
     Indication: INFLAMMATION
     Dates: start: 20061001
  11. ALLOPURINOL [Concomitant]
     Indication: GOUT
     Dates: start: 20061101, end: 20070216
  12. ALLOPURINOL [Concomitant]
     Indication: HYPERURICAEMIA
     Dates: start: 20061101, end: 20070216

REACTIONS (2)
  - ENZYME ABNORMALITY [None]
  - PANCREATITIS [None]
